FAERS Safety Report 5108147-1 (Version None)
Quarter: 2006Q3

REPORT INFORMATION
  Report Type: 
  Country: None (occurrence: None)
  Receive Date: 20060919
  Receipt Date: 20060918
  Transmission Date: 20061208
  Serious: Yes (Hospitalization)
  Sender: FDA-Public Use
  Company Number: FR-GLAXOSMITHKLINE-B0438430A

PATIENT
  Age: 30 Month
  Sex: Male

DRUGS (3)
  1. AUGMENTIN [Suspect]
     Indication: PHARYNGOLARYNGEAL PAIN
     Route: 048
     Dates: start: 20060125, end: 20060129
  2. AMOXICILLIN [Suspect]
     Indication: PHARYNGOLARYNGEAL PAIN
     Route: 048
     Dates: start: 20060122, end: 20060124
  3. DOLIPRANE [Concomitant]
     Indication: PHARYNGOLARYNGEAL PAIN
     Route: 065
     Dates: start: 20060122

REACTIONS (10)
  - CONJUNCTIVITIS [None]
  - DIARRHOEA [None]
  - GINGIVITIS [None]
  - PHARYNGEAL ERYTHEMA [None]
  - PYREXIA [None]
  - RASH MORBILLIFORM [None]
  - STOMATITIS [None]
  - THERAPY NON-RESPONDER [None]
  - TONGUE BLISTERING [None]
  - TONGUE ULCERATION [None]
